FAERS Safety Report 9784909 (Version 2)
Quarter: 2014Q1

REPORT INFORMATION
  Report Type: Spontaneous
  Country: US (occurrence: US)
  Receive Date: 20131227
  Receipt Date: 20140117
  Transmission Date: 20141002
  Serious: No
  Sender: FDA-Public Use
  Company Number: US-009507513-1312USA010921

PATIENT
  Age: 55 Year
  Sex: Male

DRUGS (6)
  1. REBETOL [Suspect]
     Indication: HEPATITIS C
     Dosage: 800 MG, UNK
  2. PEGINTERFERON ALFA-2B [Suspect]
     Indication: HEPATITIS C
     Dosage: 180 MICROGRAM, QW
     Route: 058
  3. TELAPREVIR [Suspect]
     Indication: HEPATITIS C
     Dosage: 2 DF, Q8H
  4. TENOFOVIR [Concomitant]
     Indication: ANTIRETROVIRAL THERAPY
  5. RALTEGRAVIR [Concomitant]
     Indication: ANTIRETROVIRAL THERAPY
  6. EMTRICITABINE [Suspect]

REACTIONS (1)
  - Drug ineffective [Unknown]
